FAERS Safety Report 16229035 (Version 1)
Quarter: 2019Q2

REPORT INFORMATION
  Report Type: Spontaneous
  Country: US (occurrence: US)
  Receive Date: 20190319
  Receipt Date: 20190319
  Transmission Date: 20190711
  Serious: Yes (Life-Threatening, Disabling, Other)
  Sender: FDA-Public Use
  Company Number: None

PATIENT
  Age: 70 Year
  Sex: Female
  Weight: 63.05 kg

DRUGS (2)
  1. APIDRA [Suspect]
     Active Substance: INSULIN GLULISINE
     Indication: TYPE 1 DIABETES MELLITUS
     Dosage: ?          QUANTITY:100 MG MILLIGRAM(S);OTHER FREQUENCY:28 DAY SUPPLY;?
     Route: 058
  2. LANTUS [Suspect]
     Active Substance: INSULIN GLARGINE
     Indication: TYPE 1 DIABETES MELLITUS
     Dosage: ?          OTHER FREQUENCY:AM+PM;?LOT NUMBER 8F0278 EXP 04-MAR-2021?

REACTIONS (5)
  - Face injury [None]
  - Loss of consciousness [None]
  - Shock hypoglycaemic [None]
  - Fall [None]
  - Blood glucose fluctuation [None]

NARRATIVE: CASE EVENT DATE: 20190301
